FAERS Safety Report 13041865 (Version 1)
Quarter: 2016Q4

REPORT INFORMATION
  Report Type: Spontaneous
  Country: US (occurrence: US)
  Receive Date: 20161219
  Receipt Date: 20161219
  Transmission Date: 20170207
  Serious: No
  Sender: FDA-Public Use
  Company Number: US-ROCHE-1059145

PATIENT
  Sex: Male

DRUGS (3)
  1. TARCEVA [Concomitant]
     Active Substance: ERLOTINIB HYDROCHLORIDE
  2. ZELBORAF [Suspect]
     Active Substance: VEMURAFENIB
     Indication: MALIGNANT MELANOMA
     Route: 048
  3. ZELBORAF [Suspect]
     Active Substance: VEMURAFENIB
     Indication: METASTASES TO LIVER

REACTIONS (1)
  - Mouth haemorrhage [Unknown]
